FAERS Safety Report 17495982 (Version 4)
Quarter: 2020Q2

REPORT INFORMATION
  Report Type: Spontaneous
  Country: US (occurrence: US)
  Receive Date: 20200303
  Receipt Date: 20200407
  Transmission Date: 20200713
  Serious: Yes (Disabling)
  Sender: FDA-Public Use
  Company Number: US-AMGEN-USASP2020034084

PATIENT
  Age: 73 Year
  Sex: Female
  Weight: 63.49 kg

DRUGS (5)
  1. EVENITY [Suspect]
     Active Substance: ROMOSOZUMAB-AQQG
     Indication: OSTEOPOROSIS POSTMENOPAUSAL
     Dosage: 210 MILLIGRAM, QMO
     Route: 065
     Dates: start: 20191223
  2. GABAPENTIN. [Suspect]
     Active Substance: GABAPENTIN
     Indication: MUSCULOSKELETAL DISCOMFORT
     Dosage: 800 MILLIGRAM, TID
     Route: 065
     Dates: start: 20200224
  3. OXYCODONE [Suspect]
     Active Substance: OXYCODONE
     Indication: HERPES ZOSTER
     Dosage: 5 MILLIGRAM, QID
     Route: 065
     Dates: start: 20200224
  4. PROLIA [Suspect]
     Active Substance: DENOSUMAB
     Indication: OSTEOPOROSIS POSTMENOPAUSAL
     Dosage: 120 MILLIGRAM, Q4WK
     Route: 058
  5. LIDODERM [Suspect]
     Active Substance: LIDOCAINE
     Indication: MUSCULOSKELETAL DISCOMFORT
     Dosage: UNK (EVERY 24 HOURS)
     Route: 065
     Dates: start: 20200224

REACTIONS (3)
  - Decreased immune responsiveness [Unknown]
  - Dyspnoea [Not Recovered/Not Resolved]
  - Herpes zoster [Not Recovered/Not Resolved]

NARRATIVE: CASE EVENT DATE: 20200224
